FAERS Safety Report 5873384-5 (Version None)
Quarter: 2008Q3

REPORT INFORMATION
  Report Type: 
  Country: None (occurrence: None)
  Receive Date: 20080908
  Receipt Date: 20080829
  Transmission Date: 20090109
  Serious: Yes (Other)
  Sender: FDA-Public Use
  Company Number: A0745766A

PATIENT
  Age: 74 Year
  Sex: Male

DRUGS (1)
  1. TOSITUMOMAB [Suspect]
     Indication: NON-HODGKIN'S LYMPHOMA
     Route: 042

REACTIONS (1)
  - LARYNGEAL CANCER [None]
